FAERS Safety Report 12601464 (Version 1)
Quarter: 2016Q3

REPORT INFORMATION
  Report Type: Spontaneous
  Country: US (occurrence: None)
  Receive Date: 20160727
  Receipt Date: 20160727
  Transmission Date: 20161109
  Serious: Yes (Other)
  Sender: FDA-Public Use
  Company Number: None

PATIENT
  Age: 11 Year
  Sex: Female
  Weight: 42.18 kg

DRUGS (2)
  1. CONCERTA [Concomitant]
     Active Substance: METHYLPHENIDATE HYDROCHLORIDE
  2. METHYLPHENIDATE 36MG ER [Suspect]
     Active Substance: METHYLPHENIDATE
     Indication: ATTENTION DEFICIT/HYPERACTIVITY DISORDER
     Dosage: 30 TABLET(S) IN THE MORNING TAKEN BY MOUTH
     Route: 048

REACTIONS (5)
  - Disturbance in attention [None]
  - Educational problem [None]
  - Social problem [None]
  - Lethargy [None]
  - Drug ineffective [None]

NARRATIVE: CASE EVENT DATE: 20160725
